FAERS Safety Report 17273021 (Version 2)
Quarter: 2020Q1

REPORT INFORMATION
  Report Type: Spontaneous
  Country: US (occurrence: US)
  Receive Date: 20200115
  Receipt Date: 20200130
  Transmission Date: 20200409
  Serious: Yes (Death, Other)
  Sender: FDA-Public Use
  Company Number: US-PFIZER INC-2020019166

PATIENT
  Age: 77 Year
  Sex: Female

DRUGS (2)
  1. INLYTA [Suspect]
     Active Substance: AXITINIB
     Dosage: 4 DF, CYCLIC (TWICE DAILY FOR 4 WKS, THEN 2WKS OFF)
     Route: 048
  2. INLYTA [Suspect]
     Active Substance: AXITINIB
     Indication: RENAL CANCER
     Dosage: 5 MG, UNK

REACTIONS (2)
  - Oral pain [Unknown]
  - Death [Fatal]

NARRATIVE: CASE EVENT DATE: 20200123
